FAERS Safety Report 24546313 (Version 1)
Quarter: 2024Q4

REPORT INFORMATION
  Report Type: Other
  Country: GR (occurrence: GR)
  Receive Date: 20241024
  Receipt Date: 20241024
  Transmission Date: 20250114
  Serious: Yes (Hospitalization)
  Sender: B BRAUN
  Company Number: GR-B.Braun Medical Inc.-2163314

PATIENT
  Age: 78 Year
  Sex: Female

DRUGS (6)
  1. ACETAMINOPHEN [Suspect]
     Active Substance: ACETAMINOPHEN
  2. PREGABALIN [Suspect]
     Active Substance: PREGABALIN
  3. ALPRAZOLAM [Concomitant]
     Active Substance: ALPRAZOLAM
  4. CITALOPRAM [Concomitant]
     Active Substance: CITALOPRAM
  5. NEBIVOLOL [Concomitant]
     Active Substance: NEBIVOLOL
  6. OLMESARTAN [Concomitant]
     Active Substance: OLMESARTAN

REACTIONS (2)
  - Somnolence [Unknown]
  - Drug ineffective [Unknown]
